FAERS Safety Report 4565489-6 (Version None)
Quarter: 2005Q1

REPORT INFORMATION
  Report Type: 
  Country: None (occurrence: None)
  Receive Date: 20050126
  Receipt Date: 20050106
  Transmission Date: 20050727
  Serious: Yes (Other)
  Sender: FDA-Public Use
  Company Number: US_0411108267

PATIENT
  Age: 12 Year
  Sex: Female

DRUGS (5)
  1. STRATTERA [Suspect]
     Indication: ATTENTION DEFICIT/HYPERACTIVITY DISORDER
     Dosage: 40 MG DAY
     Dates: start: 20030803, end: 20041101
  2. ADDERALL 5 [Concomitant]
  3. VITAMIN C [Concomitant]
  4. MULTI-VITAMIN [Concomitant]
  5. DOCUSATE SODIUM [Concomitant]

REACTIONS (10)
  - ABDOMINAL PAIN [None]
  - CONVULSION [None]
  - ELECTROENCEPHALOGRAM ABNORMAL [None]
  - FEELING ABNORMAL [None]
  - GASTRITIS [None]
  - HYPERVENTILATION [None]
  - NUCLEAR MAGNETIC RESONANCE IMAGING BRAIN ABNORMAL [None]
  - OESOPHAGITIS [None]
  - POST PROCEDURAL COMPLICATION [None]
  - SINUS ARRHYTHMIA [None]
